FAERS Safety Report 8937533 (Version 1)
Quarter: 2012Q4

REPORT INFORMATION
  Report Type: Spontaneous
  Country: US (occurrence: None)
  Receive Date: 20121128
  Receipt Date: 20121128
  Transmission Date: 20130627
  Serious: Yes (Other)
  Sender: FDA-Public Use
  Company Number: None

PATIENT
  Age: 53 Year
  Sex: Male
  Weight: 136.53 kg

DRUGS (2)
  1. VICTOZA [Suspect]
     Indication: TYPE 2 DIABETES MELLITUS
     Dosage: 0.6mg, once per day, sq
     Dates: start: 20121110, end: 20121126
  2. VICTOZA [Suspect]
     Indication: HYPERGLYCEMIA
     Dosage: 0.6mg, once per day, sq
     Dates: start: 20121110, end: 20121126

REACTIONS (3)
  - Nausea [None]
  - Weight increased [None]
  - Feeling abnormal [None]
